FAERS Safety Report 18433510 (Version 1)
Quarter: 2020Q4

REPORT INFORMATION
  Report Type: Spontaneous
  Country: US (occurrence: US)
  Receive Date: 20201027
  Receipt Date: 20201027
  Transmission Date: 20210114
  Serious: Yes (Other)
  Sender: FDA-Public Use
  Company Number: US-TEVA-2020-US-1841448

PATIENT
  Age: 75 Year
  Sex: Female

DRUGS (3)
  1. CARVEDILOL TEVA [Suspect]
     Active Substance: CARVEDILOL
     Route: 065
     Dates: start: 2018
  2. CARVEDILOL TEVA [Suspect]
     Active Substance: CARVEDILOL
     Route: 065
  3. CARVEDILOL TEVA [Suspect]
     Active Substance: CARVEDILOL
     Dosage: 50 MILLIGRAM DAILY;
     Route: 065

REACTIONS (5)
  - Dry eye [Not Recovered/Not Resolved]
  - Pruritus [Not Recovered/Not Resolved]
  - Pain in extremity [Not Recovered/Not Resolved]
  - Feeling cold [Not Recovered/Not Resolved]
  - Immune thrombocytopenia [Not Recovered/Not Resolved]
